FAERS Safety Report 19969930 (Version 2)
Quarter: 2021Q4

REPORT INFORMATION
  Report Type: Spontaneous
  Country: SI (occurrence: SI)
  Receive Date: 20211019
  Receipt Date: 20211022
  Transmission Date: 20220303
  Serious: Yes (Other)
  Sender: FDA-Public Use
  Company Number: 2021A773904

PATIENT
  Age: 21247 Day
  Sex: Male

DRUGS (1)
  1. DURVALUMAB [Suspect]
     Active Substance: DURVALUMAB
     Indication: Non-small cell lung cancer metastatic
     Route: 042
     Dates: start: 20201102, end: 20210802

REACTIONS (1)
  - Immune-mediated arthritis [Recovered/Resolved]

NARRATIVE: CASE EVENT DATE: 20210802
